FAERS Safety Report 19450058 (Version 1)
Quarter: 2021Q2

REPORT INFORMATION
  Report Type: Report from Study
  Country: CR (occurrence: CR)
  Receive Date: 20210622
  Receipt Date: 20210622
  Transmission Date: 20210717
  Serious: Yes (Hospitalization, Other)
  Sender: FDA-Public Use
  Company Number: NVSC2021CR037330

PATIENT
  Sex: Female

DRUGS (1)
  1. SCAPHO [Suspect]
     Active Substance: SECUKINUMAB
     Indication: ANKYLOSING SPONDYLITIS
     Dosage: 150 MG, QMO
     Route: 058
     Dates: start: 20190402

REACTIONS (5)
  - Coronary artery disease [Unknown]
  - Fear [Not Recovered/Not Resolved]
  - Transaminases increased [Unknown]
  - Drug-induced liver injury [Unknown]
  - Decreased immune responsiveness [Unknown]
